FAERS Safety Report 4606355-7 (Version None)
Quarter: 2005Q2

REPORT INFORMATION
  Report Type: 
  Country: None (occurrence: None)
  Receive Date: 20050303
  Receipt Date: 20050117
  Transmission Date: 20051028
  Serious: No
  Sender: FDA-Public Use
  Company Number: 200510073BWH

PATIENT
  Age: 32 Year
  Sex: Male

DRUGS (4)
  1. LEVITRA [Suspect]
     Indication: ERECTILE DYSFUNCTION
     Dosage: 20 MG, PRN, ORAL
     Route: 048
     Dates: start: 20040701, end: 20050108
  2. LIPITOR [Concomitant]
  3. LEVOXYL [Concomitant]
  4. INSULIN [Concomitant]

REACTIONS (2)
  - ERECTILE DYSFUNCTION [None]
  - NO ADVERSE DRUG EFFECT [None]
